FAERS Safety Report 8198878-1 (Version None)
Quarter: 2012Q1

REPORT INFORMATION
  Report Type: 
  Country: None (occurrence: None)
  Receive Date: 20120309
  Receipt Date: 20120229
  Transmission Date: 20120608
  Serious: Yes (Hospitalization)
  Sender: FDA-Public Use
  Company Number: FR-BRACCO-000774

PATIENT
  Sex: Female

DRUGS (1)
  1. PROHANCE [Suspect]
     Indication: DIAGNOSTIC PROCEDURE
     Dosage: IN PREFILLED SYRINGE
     Route: 042
     Dates: start: 20120214, end: 20120214

REACTIONS (4)
  - EYE PAIN [None]
  - LACRIMATION INCREASED [None]
  - BACK PAIN [None]
  - ERYTHEMA [None]
